FAERS Safety Report 14243555 (Version 2)
Quarter: 2018Q1

REPORT INFORMATION
  Report Type: Spontaneous
  Country: JP (occurrence: JP)
  Receive Date: 20171201
  Receipt Date: 20180216
  Transmission Date: 20180508
  Serious: Yes (Hospitalization, Other)
  Sender: FDA-Public Use
  Company Number: JP-MYLANLABS-2017M1075373

PATIENT
  Age: 55 Year
  Sex: Female

DRUGS (7)
  1. EPIRUBICIN HYDROCHLORIDE INJ. 10MG ^NK^ [Suspect]
     Active Substance: EPIRUBICIN HYDROCHLORIDE
     Indication: BREAST CANCER STAGE IV
     Dosage: 90MG/M2 ON DAY 1
     Route: 042
  2. APREPITANT. [Concomitant]
     Active Substance: APREPITANT
     Dosage: 85MG ON DAY 2 AND DAY 3
     Route: 048
  3. CYCLOPHOSPHAMIDE. [Suspect]
     Active Substance: CYCLOPHOSPHAMIDE
     Indication: BREAST CANCER STAGE IV
     Dosage: 600MG/M2 ON DAY 1
     Route: 042
  4. APREPITANT. [Concomitant]
     Active Substance: APREPITANT
     Indication: PRODUCT USED FOR UNKNOWN INDICATION
     Dosage: 125MG ORAL ON DAY 1, THEN 85MG ON DAY2 AND DAY 3
     Route: 048
  5. PALONOSETRON. [Concomitant]
     Active Substance: PALONOSETRON HYDROCHLORIDE
     Indication: PRODUCT USED FOR UNKNOWN INDICATION
     Dosage: 0.75MG ON DAY 1
     Route: 042
  6. DEXAMETHASONE. [Concomitant]
     Active Substance: DEXAMETHASONE
     Indication: PRODUCT USED FOR UNKNOWN INDICATION
     Dosage: 13.2MG ON DAY 1, THEN 8MG ON DAY 2 AND DAY 4
     Route: 042
  7. DEXAMETHASONE. [Concomitant]
     Active Substance: DEXAMETHASONE
     Dosage: 8MG ON DAY 2 AND DAY 4
     Route: 048

REACTIONS (1)
  - Aortitis [Recovered/Resolved]
